FAERS Safety Report 18254552 (Version 2)
Quarter: 2021Q2

REPORT INFORMATION
  Report Type: Spontaneous
  Country: JP (occurrence: JP)
  Receive Date: 20200910
  Receipt Date: 20210608
  Transmission Date: 20210717
  Serious: Yes (Hospitalization, Other)
  Sender: FDA-Public Use
  Company Number: JP-ABBVIE-20K-087-3558169-00

PATIENT
  Age: 49 Year
  Sex: Male
  Weight: 57 kg

DRUGS (9)
  1. HUMIRA [Suspect]
     Active Substance: ADALIMUMAB
     Route: 058
  2. SALAZOSULFAPYRIDINE [Concomitant]
     Active Substance: SULFASALAZINE
     Indication: CROHN^S DISEASE
     Dosage: DAILY DOSE 2000 MILLIGRAM
     Route: 048
     Dates: start: 20200214
  3. BROTIZOLAM [Suspect]
     Active Substance: BROTIZOLAM
     Indication: BRONCHITIS
     Route: 048
     Dates: start: 20200626, end: 20201022
  4. TEPRENONA [Concomitant]
     Indication: CROHN^S DISEASE
     Route: 048
     Dates: start: 20200626
  5. HUMIRA [Suspect]
     Active Substance: ADALIMUMAB
     Indication: CROHN^S DISEASE
     Route: 058
     Dates: start: 20200727
  6. PREDONINE [Suspect]
     Active Substance: PREDNISOLONE
     Dosage: 10 MG (MORNING), 5 MG (EVENING)
     Route: 048
     Dates: start: 20200726
  7. IMURAN [Suspect]
     Active Substance: AZATHIOPRINE
     Route: 048
     Dates: start: 20200717, end: 20210106
  8. PREDONINE [Suspect]
     Active Substance: PREDNISOLONE
     Indication: CROHN^S DISEASE
     Dosage: DECREASED
     Route: 048
     Dates: start: 20200626, end: 2020
  9. IMURAN [Suspect]
     Active Substance: AZATHIOPRINE
     Indication: CROHN^S DISEASE
     Route: 048
     Dates: start: 20200714, end: 20200716

REACTIONS (1)
  - Altered state of consciousness [Recovered/Resolved]

NARRATIVE: CASE EVENT DATE: 20200907
